FAERS Safety Report 5534962-6 (Version None)
Quarter: 2007Q4

REPORT INFORMATION
  Report Type: 
  Country: None (occurrence: None)
  Receive Date: 20071130
  Receipt Date: 20071120
  Transmission Date: 20080405
  Serious: Yes (Hospitalization)
  Sender: FDA-Public Use
  Company Number: 2007-03888

PATIENT
  Age: 77 Year
  Sex: Female

DRUGS (4)
  1. VELCADE [Suspect]
     Indication: MULTIPLE MYELOMA
     Dates: start: 20071001
  2. PREVISCAN (FLUINDIONE) [Concomitant]
  3. OMEPRAZOLE [Concomitant]
  4. BISOPROLOL FUMARATE [Concomitant]

REACTIONS (2)
  - GASTROINTESTINAL NECROSIS [None]
  - PERITONITIS [None]
